FAERS Safety Report 8989843 (Version 1)
Quarter: 2012Q4

REPORT INFORMATION
  Report Type: 
  Country: US (occurrence: US)
  Receive Date: 20121228
  Receipt Date: 20121228
  Transmission Date: 20130627
  Serious: Yes (Other)
  Sender: FDA-Public Use
  Company Number: US-GLAXOSMITHKLINE-A0918195A

PATIENT
  Age: 56 Year
  Sex: Female
  Weight: 57.2 kg

DRUGS (9)
  1. FLOLAN [Suspect]
     Indication: COR PULMONALE CHRONIC
     Dates: start: 20041102
  2. FUROSEMIDE [Concomitant]
  3. PROTONIX [Concomitant]
  4. SPIRONOLACTONE [Concomitant]
  5. COMBIGAN [Concomitant]
  6. TYLENOL [Concomitant]
  7. TRACLEER [Concomitant]
  8. MULTIVITAMIN [Concomitant]
  9. LUMIGAN EYE DROPS [Concomitant]

REACTIONS (7)
  - Glaucoma [Recovered/Resolved]
  - Glaucoma surgery [Unknown]
  - Cataract operation [Unknown]
  - Cataract [Unknown]
  - Visual impairment [Unknown]
  - Balance disorder [Unknown]
  - Treatment noncompliance [Unknown]
